FAERS Safety Report 8546738-6 (Version None)
Quarter: 2012Q3

REPORT INFORMATION
  Report Type: 
  Country: None (occurrence: None)
  Receive Date: 20120727
  Receipt Date: 20120201
  Transmission Date: 20120928
  Serious: No
  Sender: FDA-Public Use
  Company Number: US-ASTRAZENECA-2012SE07155

PATIENT
  Age: 36 Year
  Sex: Female

DRUGS (4)
  1. SEROQUEL [Suspect]
     Indication: POSTPARTUM DEPRESSION
     Route: 048
  2. SEROQUEL [Suspect]
     Route: 048
  3. BUSPAR [Concomitant]
  4. EFFEXOR [Concomitant]

REACTIONS (2)
  - OFF LABEL USE [None]
  - MUSCLE RIGIDITY [None]
